FAERS Safety Report 10298540 (Version 1)
Quarter: 2014Q3

REPORT INFORMATION
  Report Type: Spontaneous
  Country: FR (occurrence: FR)
  Receive Date: 20140711
  Receipt Date: 20140711
  Transmission Date: 20150326
  Serious: Yes (Hospitalization)
  Sender: FDA-Public Use
  Company Number: FR-AMGEN-FRACT2014051356

PATIENT
  Sex: Female

DRUGS (11)
  1. CYCLOPHOSPHAMIDE. [Concomitant]
     Active Substance: CYCLOPHOSPHAMIDE
     Indication: DIFFUSE LARGE B-CELL LYMPHOMA
     Dosage: 150 MG/M2, FROM DAY1 TO DAY3
     Route: 048
     Dates: start: 20071004, end: 20071006
  2. LANZOR [Concomitant]
     Active Substance: LANSOPRAZOLE
     Dosage: 1 TABLET IN THE EVENING
  3. PREDNISOLONE. [Concomitant]
     Active Substance: PREDNISOLONE
     Indication: DIFFUSE LARGE B-CELL LYMPHOMA
     Dosage: 50 MG/M2, FROM DAY1 TO DAY3
     Route: 048
     Dates: start: 20071004, end: 20071006
  4. ZOLPIDEM [Concomitant]
     Active Substance: ZOLPIDEM\ZOLPIDEM TARTRATE
     Dosage: 10 MG, UNK
  5. MOTILIUM                           /00498202/ [Concomitant]
     Dosage: ONE TABLET 1-1-1 (3 IN 1 D)
  6. DAFLON                             /01026201/ [Concomitant]
     Active Substance: DIOSMIN\HESPERIDIN
     Dosage: 2 TABLETS 1-1-1 (3 IN 1 D)
  7. IDARUBICIN HYDROCHLORIDE. [Concomitant]
     Active Substance: IDARUBICIN HYDROCHLORIDE
     Indication: DIFFUSE LARGE B-CELL LYMPHOMA
     Dosage: 30 MG/M2, ON DAY 1
     Route: 048
     Dates: start: 20071004
  8. RITUXIMAB [Concomitant]
     Active Substance: RITUXIMAB
     Indication: DIFFUSE LARGE B-CELL LYMPHOMA
     Dosage: 375 MG/M2, ON DAY 1
     Route: 042
     Dates: start: 20071004
  9. PROZAC [Concomitant]
     Active Substance: FLUOXETINE HYDROCHLORIDE
     Dosage: UNK, ONE TABLET IN THE MORNING
  10. FILGRASTIM [Suspect]
     Active Substance: FILGRASTIM
     Indication: NEUTROPENIA
     Dosage: 5 MG/KG, 1 IN 1 D
     Route: 058
     Dates: start: 20071009, end: 20071015
  11. ETOPOSIDE. [Concomitant]
     Active Substance: ETOPOSIDE
     Indication: DIFFUSE LARGE B-CELL LYMPHOMA
     Dosage: 100 MG/M2, FROM DAY 1 TO DAY3
     Route: 048
     Dates: start: 20071004, end: 20071006

REACTIONS (2)
  - Febrile bone marrow aplasia [Recovered/Resolved]
  - Urinary tract infection [Recovered/Resolved]

NARRATIVE: CASE EVENT DATE: 20071015
